FAERS Safety Report 13594508 (Version 1)
Quarter: 2017Q2

REPORT INFORMATION
  Report Type: Spontaneous
  Country: US (occurrence: US)
  Receive Date: 20170530
  Receipt Date: 20170530
  Transmission Date: 20170830
  Serious: No
  Sender: FDA-Public Use
  Company Number: US-TEVA-770049USA

PATIENT
  Sex: Female
  Weight: 74.91 kg

DRUGS (2)
  1. QNASL [Suspect]
     Active Substance: BECLOMETHASONE DIPROPIONATE
     Indication: SINUS DISORDER
     Dosage: 2 PUFFS IN EACH NOSTRIL ONCE DAILY
  2. QNASL [Suspect]
     Active Substance: BECLOMETHASONE DIPROPIONATE
     Indication: HYPERSENSITIVITY

REACTIONS (2)
  - Burning sensation [Recovered/Resolved]
  - Sneezing [Recovered/Resolved]
